FAERS Safety Report 25480384 (Version 1)
Quarter: 2025Q2

REPORT INFORMATION
  Report Type: Spontaneous
  Country: CN (occurrence: CN)
  Receive Date: 20250625
  Receipt Date: 20250625
  Transmission Date: 20250716
  Serious: Yes (Hospitalization)
  Sender: PFIZER
  Company Number: CN-PFIZER INC-PV202500074466

PATIENT
  Age: 68 Year
  Sex: Male
  Weight: 56.8 kg

DRUGS (1)
  1. AXITINIB [Suspect]
     Active Substance: AXITINIB
     Indication: Renal cancer
     Dosage: 5 MG, 2X/DAY
     Route: 048
     Dates: start: 20250505, end: 20250526

REACTIONS (2)
  - Palmar-plantar erythrodysaesthesia syndrome [Recovering/Resolving]
  - Mouth ulceration [Recovering/Resolving]

NARRATIVE: CASE EVENT DATE: 20250512
